FAERS Safety Report 5848636-5 (Version None)
Quarter: 2008Q3

REPORT INFORMATION
  Report Type: 
  Country: None (occurrence: None)
  Receive Date: 20080818
  Receipt Date: 20080812
  Transmission Date: 20090109
  Serious: Yes (Life-Threatening)
  Sender: FDA-Public Use
  Company Number: JP-SANOFI-SYNTHELABO-A01200808235

PATIENT
  Sex: Female
  Weight: 53.5 kg

DRUGS (8)
  1. MOBIC [Concomitant]
     Dosage: UNK
  2. BLOPRESS [Concomitant]
     Dosage: UNK
  3. OXYCONTIN [Concomitant]
     Dosage: UNK
  4. ADALAT [Concomitant]
     Dosage: UNK
  5. AVASTIN [Suspect]
     Indication: RECTAL CANCER METASTATIC
     Route: 041
     Dates: start: 20080622, end: 20080622
  6. FLUOROURACIL [Suspect]
     Indication: RECTAL CANCER METASTATIC
     Dosage: UNK
     Route: 042
     Dates: start: 20080622, end: 20080622
  7. ELPLAT [Suspect]
     Indication: RECTAL CANCER METASTATIC
     Dosage: UNK
     Route: 041
     Dates: start: 20080622, end: 20080622
  8. ISOVORIN [Concomitant]
     Dosage: UNK
     Dates: start: 20071220, end: 20071220

REACTIONS (3)
  - DUODENAL PERFORATION [None]
  - HYPERTENSION [None]
  - NAUSEA [None]
